FAERS Safety Report 9656584 (Version 1)
Quarter: 2013Q4

REPORT INFORMATION
  Report Type: Spontaneous
  Country: US (occurrence: US)
  Receive Date: 20131030
  Receipt Date: 20131030
  Transmission Date: 20140711
  Serious: No
  Sender: FDA-Public Use
  Company Number: US-GLAXOSMITHKLINE-A1017522A

PATIENT
  Sex: Female

DRUGS (5)
  1. SEREVENT [Suspect]
     Indication: CHRONIC OBSTRUCTIVE PULMONARY DISEASE
     Dosage: 1PUFF TWICE PER DAY
     Route: 055
  2. ALBUTEROL [Concomitant]
  3. SOTALOL [Concomitant]
  4. COUMADIN [Concomitant]
  5. LEVOTHYROXINE [Concomitant]

REACTIONS (2)
  - Drug ineffective [Recovered/Resolved]
  - Ill-defined disorder [Recovered/Resolved]
